FAERS Safety Report 4763855-7 (Version None)
Quarter: 2005Q3

REPORT INFORMATION
  Report Type: 
  Country: None (occurrence: None)
  Receive Date: 20050908
  Receipt Date: 20050829
  Transmission Date: 20060218
  Serious: Yes (Hospitalization)
  Sender: FDA-Public Use
  Company Number: MX-ABBOTT-05P-107-0310000-00

PATIENT
  Sex: Male
  Weight: 59.5 kg

DRUGS (6)
  1. KALETRA [Suspect]
     Indication: HIV INFECTION
     Dosage: ROUTE: VO
     Route: 050
     Dates: start: 20050805
  2. FLUCONAZOLE [Concomitant]
     Indication: PROPHYLAXIS
     Route: 048
     Dates: start: 20050722
  3. AZITROMYCIN [Concomitant]
     Indication: PROPHYLAXIS
     Route: 048
     Dates: start: 20050722
  4. DAPSONE [Concomitant]
     Indication: PROPHYLAXIS
     Route: 048
     Dates: start: 20050722
  5. LAMIVUDINE + ZIDOVUDINE [Concomitant]
     Route: 048
     Dates: start: 20050805
  6. LAMIVUDINE + ZIDOVUDINE [Concomitant]
     Route: 048
     Dates: start: 20050805

REACTIONS (1)
  - PNEUMONIA [None]
